FAERS Safety Report 8451231-5 (Version None)
Quarter: 2012Q2

REPORT INFORMATION
  Report Type: 
  Country: None (occurrence: None)
  Receive Date: 20120620
  Receipt Date: 20120510
  Transmission Date: 20120825
  Serious: No
  Sender: FDA-Public Use
  Company Number: US-VERTEX PHARMACEUTICALS INC.-AE-2012-001068

PATIENT
  Sex: Male
  Weight: 74.456 kg

DRUGS (4)
  1. PEGASYS [Concomitant]
     Indication: HEPATITIS C
     Route: 058
     Dates: start: 20120117
  2. RIBAVIRIN [Concomitant]
     Indication: HEPATITIS C
     Route: 048
     Dates: start: 20120117
  3. RIBAVIRIN [Concomitant]
     Route: 048
  4. INCIVEK [Suspect]
     Indication: HEPATITIS C
     Route: 048
     Dates: start: 20120117, end: 20120408

REACTIONS (6)
  - ANORECTAL DISCOMFORT [None]
  - DIARRHOEA [None]
  - ANAL PRURITUS [None]
  - EYE DISORDER [None]
  - RASH PRURITIC [None]
  - PRURITUS [None]
